FAERS Safety Report 9352895 (Version 1)
Quarter: 2013Q2

REPORT INFORMATION
  Report Type: Spontaneous
  Country: US (occurrence: US)
  Receive Date: 20130618
  Receipt Date: 20130618
  Transmission Date: 20140414
  Serious: No
  Sender: FDA-Public Use
  Company Number: US-BIOGENIDEC-2013BI054555

PATIENT
  Sex: Female

DRUGS (1)
  1. TYSABRI [Suspect]
     Indication: MULTIPLE SCLEROSIS
     Route: 042
     Dates: start: 20120628

REACTIONS (7)
  - Weight decreased [Unknown]
  - Bone pain [Unknown]
  - Pain [Unknown]
  - Depressed mood [Unknown]
  - Abdominal distension [Unknown]
  - Asthenia [Unknown]
  - Fatigue [Unknown]
